FAERS Safety Report 12879334 (Version 2)
Quarter: 2016Q4

REPORT INFORMATION
  Report Type: Report from Study
  Country: DE (occurrence: DE)
  Receive Date: 20161025
  Receipt Date: 20161104
  Transmission Date: 20170207
  Serious: Yes (Other)
  Sender: FDA-Public Use
  Company Number: DE-AMGEN-DEUNI2016147406

PATIENT
  Age: 55 Year
  Sex: Female
  Weight: 85 kg

DRUGS (3)
  1. VOLTAREN [Concomitant]
     Active Substance: DICLOFENAC SODIUM
     Indication: AXIAL SPONDYLOARTHRITIS
     Dosage: UNK
     Route: 048
     Dates: start: 20160715
  2. ETANERCEPT [Suspect]
     Active Substance: ETANERCEPT
     Indication: AXIAL SPONDYLOARTHRITIS
     Dosage: 50 MG, QWK
     Route: 058
     Dates: start: 20160115, end: 20161017
  3. NOVALGIN [Concomitant]
     Active Substance: METAMIZOLE SODIUM
     Indication: AXIAL SPONDYLOARTHRITIS
     Dosage: UNK
     Route: 048
     Dates: start: 20160720

REACTIONS (1)
  - Disease progression [Not Recovered/Not Resolved]

NARRATIVE: CASE EVENT DATE: 20160726
